FAERS Safety Report 6386888-6 (Version None)
Quarter: 2009Q4

REPORT INFORMATION
  Report Type: 
  Country: None (occurrence: None)
  Receive Date: 20091001
  Receipt Date: 20091001
  Transmission Date: 20100525
  Serious: Yes (Hospitalization)
  Sender: FDA-Public Use
  Company Number: None

PATIENT
  Sex: Male
  Weight: 81 kg

DRUGS (3)
  1. LAMOTRIGINE [Suspect]
     Indication: ANGER
     Dosage: 100MG DAILY P.O.  (NON-TEVA GENERIC 8/20 - 8/24 IMPROVED)
     Route: 048
     Dates: start: 20090601
  2. LAMOTRIGINE [Suspect]
     Indication: DEPRESSION
     Dosage: 100MG DAILY P.O.  (NON-TEVA GENERIC 8/20 - 8/24 IMPROVED)
     Route: 048
     Dates: start: 20090601
  3. LAMOTRIGINE [Suspect]
     Indication: TRAUMATIC BRAIN INJURY
     Dosage: 100MG DAILY P.O.  (NON-TEVA GENERIC 8/20 - 8/24 IMPROVED)
     Route: 048
     Dates: start: 20090601

REACTIONS (6)
  - ATAXIA [None]
  - BLOOD PRESSURE SYSTOLIC INCREASED [None]
  - HEADACHE [None]
  - HYPOAESTHESIA [None]
  - PARAESTHESIA [None]
  - PRODUCT SUBSTITUTION ISSUE [None]
